FAERS Safety Report 18110207 (Version 1)
Quarter: 2020Q3

REPORT INFORMATION
  Report Type: Spontaneous
  Country: CA (occurrence: CA)
  Receive Date: 20200804
  Receipt Date: 20200804
  Transmission Date: 20201103
  Serious: Yes (Hospitalization)
  Sender: FDA-Public Use
  Company Number: CA-ASTRAZENECA-2020SE94402

PATIENT
  Age: 71 Year
  Sex: Male
  Weight: 81.6 kg

DRUGS (3)
  1. FORXIGA [Suspect]
     Active Substance: DAPAGLIFLOZIN
     Indication: TYPE 2 DIABETES MELLITUS
     Route: 048
  2. RAMIPRIL. [Concomitant]
     Active Substance: RAMIPRIL
  3. JANUMET [Concomitant]
     Active Substance: METFORMIN HYDROCHLORIDE\SITAGLIPTIN PHOSPHATE

REACTIONS (5)
  - Anion gap [Recovered/Resolved]
  - Glucose urine present [Recovered/Resolved]
  - White blood cell count increased [Recovered/Resolved]
  - Protein urine present [Recovered/Resolved]
  - Euglycaemic diabetic ketoacidosis [Recovered/Resolved]
